FAERS Safety Report 25698717 (Version 2)
Quarter: 2025Q3

REPORT INFORMATION
  Report Type: Spontaneous
  Country: US (occurrence: US)
  Receive Date: 20250819
  Receipt Date: 20250905
  Transmission Date: 20251021
  Serious: Yes (Hospitalization)
  Sender: ALEXION PHARMACEUTICALS
  Company Number: US-AstraZeneca-CH-00929569A

PATIENT
  Age: 60 Year
  Sex: Female
  Weight: 68.027 kg

DRUGS (2)
  1. ULTOMIRIS [Suspect]
     Active Substance: RAVULIZUMAB-CWVZ
     Indication: Myasthenia gravis
     Dosage: 1100 MILLIGRAM, Q8W
     Dates: start: 20240221
  2. ULTOMIRIS [Suspect]
     Active Substance: RAVULIZUMAB-CWVZ
     Indication: Asthenia

REACTIONS (1)
  - Hemiplegic migraine [Unknown]

NARRATIVE: CASE EVENT DATE: 20250718
